FAERS Safety Report 22166172 (Version 1)
Quarter: 2023Q2

REPORT INFORMATION
  Report Type: Spontaneous
  Country: IT (occurrence: IT)
  Receive Date: 20230403
  Receipt Date: 20230403
  Transmission Date: 20230722
  Serious: Yes (Life-Threatening, Other)
  Sender: FDA-Public Use
  Company Number: None

PATIENT
  Age: 80 Year
  Sex: Male
  Weight: 80 kg

DRUGS (4)
  1. YERVOY [Suspect]
     Active Substance: IPILIMUMAB
     Indication: Lung adenocarcinoma stage IV
     Route: 042
     Dates: start: 20230209, end: 20230315
  2. OPDIVO [Suspect]
     Active Substance: NIVOLUMAB
     Indication: Lung adenocarcinoma stage IV
     Route: 042
     Dates: start: 20230209, end: 20230315
  3. CARBOPLATIN [Concomitant]
     Active Substance: CARBOPLATIN
     Indication: Lung adenocarcinoma stage IV
     Route: 042
     Dates: start: 20230209, end: 20230315
  4. PEMETREXED [Concomitant]
     Active Substance: PEMETREXED
     Indication: Lung adenocarcinoma stage IV
     Route: 042
     Dates: start: 20230209, end: 20230315

REACTIONS (3)
  - Atrioventricular block complete [Recovering/Resolving]
  - Myocarditis [Recovering/Resolving]
  - Acute myocardial infarction [Recovering/Resolving]

NARRATIVE: CASE EVENT DATE: 20230320
